FAERS Safety Report 5868100-7 (Version None)
Quarter: 2008Q3

REPORT INFORMATION
  Report Type: 
  Country: None (occurrence: None)
  Receive Date: 20080902
  Receipt Date: 20080418
  Transmission Date: 20090109
  Serious: No
  Sender: FDA-Public Use
  Company Number: US-ABBOTT-08P-163-0448111-00

PATIENT
  Sex: Female

DRUGS (1)
  1. DEPAKOTE ER [Suspect]
     Indication: DRUG USE FOR UNKNOWN INDICATION
     Dosage: TWO GRAM DAILY DOSE

REACTIONS (3)
  - ANTI-HBS ANTIBODY POSITIVE [None]
  - BLOOD ALBUMIN DECREASED [None]
  - HEPATITIS B CORE ANTIGEN POSITIVE [None]
